FAERS Safety Report 5386315-1 (Version None)
Quarter: 2007Q3

REPORT INFORMATION
  Report Type: 
  Country: None (occurrence: None)
  Receive Date: 20070713
  Receipt Date: 20070703
  Transmission Date: 20080115
  Serious: Yes (Other)
  Sender: FDA-Public Use
  Company Number: PHHO2007BR11106

PATIENT
  Age: 68 Year
  Sex: Female

DRUGS (1)
  1. DIOVAN HCT [Suspect]
     Dosage: 160/12.5MG
     Route: 048

REACTIONS (3)
  - BACK PAIN [None]
  - DYSURIA [None]
  - RENAL PAIN [None]
